FAERS Safety Report 17251586 (Version 1)
Quarter: 2020Q1

REPORT INFORMATION
  Report Type: Spontaneous
  Country: US (occurrence: US)
  Receive Date: 20200108
  Receipt Date: 20200108
  Transmission Date: 20200409
  Serious: Yes (Other)
  Sender: FDA-Public Use
  Company Number: None

PATIENT
  Age: 52 Year
  Sex: Female
  Weight: 62.1 kg

DRUGS (4)
  1. CIPROFLOXACN [Suspect]
     Active Substance: CIPROFLOXACIN
     Indication: URINARY TRACT INFECTION
     Dosage: ?          QUANTITY:1 TABLET(S);?
     Route: 048
     Dates: start: 20191209, end: 20191214
  2. VEGAN DHA (GARDEN OF LIFE) [Concomitant]
  3. GARDEN OF LIFE PROBIOTICS [Concomitant]
  4. MULTIVITAMIN (GARDEN OF LIFE MYKIND 55+) [Concomitant]

REACTIONS (2)
  - Tendonitis [None]
  - Arthralgia [None]

NARRATIVE: CASE EVENT DATE: 20200105
